FAERS Safety Report 6370493-1 (Version None)
Quarter: 2009Q3

REPORT INFORMATION
  Report Type: 
  Country: None (occurrence: None)
  Receive Date: 20090921
  Receipt Date: 20090921
  Transmission Date: 20100115
  Serious: Yes (Death, Hospitalization)
  Sender: FDA-Public Use
  Company Number: None

PATIENT
  Age: 46 Year
  Sex: Male
  Weight: 113.3993 kg

DRUGS (8)
  1. ALDACTONE [Suspect]
     Indication: CARDIAC FAILURE CONGESTIVE
     Dosage: 100 MG DAY ORALLY
     Route: 048
     Dates: start: 20090204, end: 20090205
  2. HUMULIN N VIALS INSULIN [Concomitant]
  3. LANTUS VIAL INSULIN [Concomitant]
  4. COQ10 [Concomitant]
  5. MULTI-VITAMIN WITH BETA CAROTENE, LUTEIN + LYOPENE [Concomitant]
  6. ANTICOAGULANT ETHYLENEDIAMINE TETRAACETIC ACID (EDTA) [Concomitant]
  7. NATTOKINASE [Concomitant]
  8. POTASSIUM GLUCONATE TAB [Concomitant]

REACTIONS (5)
  - CEREBROVASCULAR ACCIDENT [None]
  - COMA [None]
  - PRODUCT COUNTERFEIT [None]
  - PRODUCT QUALITY ISSUE [None]
  - SLEEP DISORDER [None]
